FAERS Safety Report 7662764 (Version 4)
Quarter: 2013Q3

REPORT INFORMATION
  Report Type: Spontaneous
  Country: US (occurrence: US)
  Receive Date: 20101110
  Receipt Date: 20130924
  Transmission Date: 20140515
  Serious: Yes (Hospitalization, Other)
  Sender: FDA-Public Use
  Company Number: US-JNJFOC-20100806050

PATIENT
  Sex: Male
  Weight: 83.46 kg

DRUGS (7)
  1. LEVAQUIN [Suspect]
     Indication: SINUSITIS
     Route: 048
     Dates: start: 2007, end: 2007
  2. LEVAQUIN [Suspect]
     Indication: BRONCHITIS
     Route: 048
     Dates: start: 2007, end: 2007
  3. RHINOCORT [Suspect]
     Indication: UPPER RESPIRATORY TRACT INFECTION
     Route: 045
  4. NASACORT [Suspect]
     Indication: EUSTACHIAN TUBE DYSFUNCTION
     Route: 045
  5. NASACORT [Suspect]
     Indication: BRONCHITIS
     Route: 045
  6. FLONASE [Suspect]
     Indication: SINUSITIS
     Route: 045
  7. AMOXICILLIN [Concomitant]
     Indication: INFECTION

REACTIONS (4)
  - Ligament sprain [Unknown]
  - Meniscus injury [Unknown]
  - Tendon rupture [Recovered/Resolved]
  - Tendon rupture [Unknown]
